FAERS Safety Report 10495703 (Version 1)
Quarter: 2014Q4

REPORT INFORMATION
  Report Type: Other
  Country: CA (occurrence: CA)
  Receive Date: 20141003
  Receipt Date: 20141003
  Transmission Date: 20150528
  Serious: Yes (Other)
  Sender: FDA-Public Use
  Company Number: CA-BRISTOL-MYERS SQUIBB COMPANY-21429014

PATIENT
  Age: 41 Year
  Sex: Male

DRUGS (12)
  1. LAMIVUDINE. [Concomitant]
     Active Substance: LAMIVUDINE
     Indication: HIV INFECTION
  2. CALCIUM [Concomitant]
     Active Substance: CALCIUM
  3. GINKGO BILOBA [Interacting]
     Active Substance: GINKGO
  4. MAGNESIUM [Concomitant]
     Active Substance: MAGNESIUM
  5. MULTIVITAMIN [Concomitant]
     Active Substance: VITAMINS
  6. HORSE-CHESTNUT [Concomitant]
     Indication: HAEMORRHOIDS
  7. SUSTIVA [Suspect]
     Active Substance: EFAVIRENZ
     Indication: HIV INFECTION
  8. ZIDOVUDINE. [Concomitant]
     Active Substance: ZIDOVUDINE
     Indication: HIV INFECTION
  9. FLAXSEED [Concomitant]
     Active Substance: FLAX SEED
  10. RUTIN [Concomitant]
     Active Substance: RUTIN
  11. OMEGA 3 FATTY ACID [Concomitant]
     Active Substance: OMEGA-3 FATTY ACIDS
  12. VITAMIN D [Concomitant]
     Active Substance: CHOLECALCIFEROL

REACTIONS (2)
  - Drug interaction [Unknown]
  - Virologic failure [Unknown]
